FAERS Safety Report 9368018 (Version 1)
Quarter: 2013Q2

REPORT INFORMATION
  Report Type: Spontaneous
  Country: US (occurrence: US)
  Receive Date: 20130625
  Receipt Date: 20130625
  Transmission Date: 20140414
  Serious: No
  Sender: FDA-Public Use
  Company Number: US-ASTELLAS-2013US002877

PATIENT
  Sex: Female
  Weight: 73 kg

DRUGS (2)
  1. VESICARE [Suspect]
     Indication: HYPERTONIC BLADDER
     Dosage: 5 MG, UID/QD
     Route: 048
  2. VESICARE [Suspect]
     Indication: URINARY INCONTINENCE

REACTIONS (4)
  - Unevaluable event [Unknown]
  - Swelling face [Unknown]
  - Nasopharyngitis [Unknown]
  - Influenza like illness [Unknown]
